FAERS Safety Report 9220157 (Version 2)
Quarter: 2013Q2

REPORT INFORMATION
  Report Type: Spontaneous
  Country: GB (occurrence: GB)
  Receive Date: 20130409
  Receipt Date: 20130421
  Transmission Date: 20140414
  Serious: No
  Sender: FDA-Public Use
  Company Number: GB-B.I. PHARMACEUTICALS,INC./RIDGEFIELD-2013-UK-00848UK

PATIENT
  Sex: 0

DRUGS (1)
  1. TRAJENTA [Suspect]

REACTIONS (1)
  - No adverse event [Unknown]
